FAERS Safety Report 5456179-6 (Version None)
Quarter: 2007Q3

REPORT INFORMATION
  Report Type: 
  Country: None (occurrence: None)
  Receive Date: 20070918
  Receipt Date: 20070702
  Transmission Date: 20080115
  Serious: Yes (Other)
  Sender: FDA-Public Use
  Company Number: US-ASTRAZENECA-2006UW23108

PATIENT
  Age: 43 Year
  Sex: Female
  Weight: 118.2 kg

DRUGS (7)
  1. SEROQUEL [Suspect]
     Indication: BIPOLAR DISORDER
     Dosage: 200-300 MG
     Route: 048
     Dates: start: 20000101, end: 20050101
  2. ABILIFY (ARIPIPARAZOLE) [Concomitant]
  3. TOPAMAX [Concomitant]
  4. TRILEPTAL [Concomitant]
  5. LEXAPRO [Concomitant]
  6. KLONOPIN [Concomitant]
  7. KOZERAM [Concomitant]

REACTIONS (1)
  - PANCREATITIS [None]
